FAERS Safety Report 5683894-1 (Version None)
Quarter: 2008Q1

REPORT INFORMATION
  Report Type: 
  Country: None (occurrence: None)
  Receive Date: 20080327
  Receipt Date: 20080327
  Transmission Date: 20080703
  Serious: Yes (Other)
  Sender: FDA-Public Use
  Company Number: None

PATIENT
  Sex: Female
  Weight: 53.0709 kg

DRUGS (1)
  1. CIPROFLOXACIN 500MG BAYER PHARMACEUTICALS [Suspect]
     Indication: CYSTITIS
     Dosage: 500MG BID PO
     Route: 048
     Dates: start: 20080207, end: 20080228

REACTIONS (3)
  - MUSCLE SPASMS [None]
  - PAIN IN EXTREMITY [None]
  - PALPITATIONS [None]
